FAERS Safety Report 8241787 (Version 2)
Quarter: 2015Q4

REPORT INFORMATION
  Report Type: Report from Study
  Country: US (occurrence: US)
  Receive Date: 20111111
  Receipt Date: 20151204
  Transmission Date: 20160305
  Serious: Yes (Life-Threatening, Hospitalization)
  Sender: FDA-Public Use
  Company Number: US-ROCHE-1007918

PATIENT
  Age: 72 Year
  Sex: Female
  Weight: 80.91 kg

DRUGS (4)
  1. BEVACIZUMAB [Suspect]
     Active Substance: BEVACIZUMAB
     Indication: ENDOMETRIAL CANCER
     Route: 042
     Dates: start: 20110624
  2. CARBOPLATIN. [Suspect]
     Active Substance: CARBOPLATIN
     Indication: ENDOMETRIAL CANCER
     Dosage: AUC 6 OVER 30 MINUTES ON DAY 1
     Route: 042
     Dates: start: 20110624
  3. IXABEPILONE [Suspect]
     Active Substance: IXABEPILONE
     Indication: ENDOMETRIAL CANCER
     Route: 042
     Dates: start: 20110624
  4. COUMADIN [Suspect]
     Active Substance: WARFARIN SODIUM
     Indication: PRODUCT USED FOR UNKNOWN INDICATION
     Route: 065

REACTIONS (11)
  - Hypokalaemia [Recovered/Resolved with Sequelae]
  - Hyponatraemia [Recovered/Resolved with Sequelae]
  - Hypoalbuminaemia [Recovered/Resolved with Sequelae]
  - Hypophosphataemia [Recovered/Resolved with Sequelae]
  - Neutrophil count decreased [Recovered/Resolved with Sequelae]
  - Soft tissue necrosis [Recovered/Resolved with Sequelae]
  - Hypomagnesaemia [Recovered/Resolved with Sequelae]
  - Hypocalcaemia [Recovered/Resolved with Sequelae]
  - Anaemia [Recovered/Resolved with Sequelae]
  - International normalised ratio increased [Recovered/Resolved with Sequelae]
  - White blood cell count decreased [Recovered/Resolved with Sequelae]

NARRATIVE: CASE EVENT DATE: 20110822
